FAERS Safety Report 6998150-9 (Version None)
Quarter: 2010Q3

REPORT INFORMATION
  Report Type: 
  Country: None (occurrence: None)
  Receive Date: 20100920
  Receipt Date: 20091207
  Transmission Date: 20110219
  Serious: No
  Sender: FDA-Public Use
  Company Number: US-ASTRAZENECA-2007UW05489

PATIENT
  Age: 18528 Day
  Sex: Female
  Weight: 73.9 kg

DRUGS (19)
  1. SEROQUEL [Suspect]
     Indication: DEPRESSION
     Dosage: 150-300 MG QD
     Route: 048
     Dates: start: 20020506, end: 20050120
  2. SEROQUEL [Suspect]
     Route: 048
     Dates: start: 20020506
  3. SEROQUEL [Suspect]
     Dosage: 150-300 MG
     Route: 048
     Dates: start: 20020612
  4. SEROQUEL [Suspect]
     Route: 048
     Dates: start: 20021127
  5. SEROQUEL [Suspect]
     Route: 048
     Dates: start: 20021129, end: 20050120
  6. PREMARIN [Concomitant]
  7. DIGITEK [Concomitant]
  8. ATENOLOL [Concomitant]
  9. CELEXA [Concomitant]
  10. CEPHALEXIN [Concomitant]
  11. TRAMADOL [Concomitant]
  12. ETODOLAC [Concomitant]
  13. DIAZEPAM [Concomitant]
  14. CARISOPRODOL [Concomitant]
  15. HYDROCODONE BITARTRATE AND ACETAMINOPHEN [Concomitant]
     Dosage: 7.5 MG / 650 MG
  16. RISPERDAL [Concomitant]
  17. ZYPREXA [Concomitant]
     Dates: start: 20001201, end: 20010501
  18. WARFARIN SODIUM [Concomitant]
     Route: 048
     Dates: start: 20080522
  19. TETRACYCLINE [Concomitant]
     Route: 048
     Dates: start: 20030630

REACTIONS (3)
  - DIABETES MELLITUS [None]
  - OBESITY [None]
  - TYPE 2 DIABETES MELLITUS [None]
